FAERS Safety Report 20373495 (Version 1)
Quarter: 2022Q1

REPORT INFORMATION
  Report Type: Spontaneous
  Country: FR (occurrence: FR)
  Receive Date: 20220125
  Receipt Date: 20220125
  Transmission Date: 20220423
  Serious: Yes (Other)
  Sender: FDA-Public Use
  Company Number: None

PATIENT
  Age: 99 Year
  Sex: Male
  Weight: 73 kg

DRUGS (6)
  1. ONDANSETRON [Suspect]
     Active Substance: ONDANSETRON
     Indication: Antiemetic supportive care
     Dosage: 1 DOSAGE FORM (AS NECESSARY)
     Route: 048
     Dates: start: 20210719, end: 20210811
  2. CARBOPLATIN [Suspect]
     Active Substance: CARBOPLATIN
     Indication: Metastatic bronchial carcinoma
     Dosage: 560 MG, TIW
     Route: 042
     Dates: start: 20210719, end: 20210809
  3. PREDNISOLONE SODIUM METAZOATE [Suspect]
     Active Substance: PREDNISOLONE SODIUM METAZOATE
     Indication: Premedication
     Dosage: UNK (INCONNUE)
     Route: 048
     Dates: start: 20210719, end: 20210809
  4. ETOPOSIDE [Suspect]
     Active Substance: ETOPOSIDE
     Indication: Metastatic bronchial carcinoma
     Dosage: 585 MG, TIW
     Route: 042
     Dates: start: 20210426
  5. EMEND [Suspect]
     Active Substance: APREPITANT
     Indication: Antiemetic supportive care
     Dosage: 1 DOSAGE FORM (AS NECESSARY)
     Route: 048
     Dates: start: 20210719, end: 20210818
  6. KEPPRA [Concomitant]
     Active Substance: LEVETIRACETAM
     Indication: Seizure prophylaxis
     Dosage: 1000 MG, QD
     Route: 048
     Dates: start: 20210401

REACTIONS (1)
  - Rash maculo-papular [Recovering/Resolving]

NARRATIVE: CASE EVENT DATE: 20210729
